FAERS Safety Report 23034303 (Version 1)
Quarter: 2023Q4

REPORT INFORMATION
  Report Type: Spontaneous
  Country: US (occurrence: None)
  Receive Date: 20231005
  Receipt Date: 20231005
  Transmission Date: 20240109
  Serious: No
  Sender: FDA-Public Use
  Company Number: 2023A220645

PATIENT
  Age: 78 Year

DRUGS (1)
  1. FARXIGA [Suspect]
     Active Substance: DAPAGLIFLOZIN PROPANEDIOL
     Dosage: UNKNOWN
     Route: 048

REACTIONS (4)
  - Feeling abnormal [Unknown]
  - Palpitations [Unknown]
  - Dyspnoea exertional [Unknown]
  - Fatigue [Unknown]
